FAERS Safety Report 7686411-X (Version None)
Quarter: 2011Q3

REPORT INFORMATION
  Report Type: 
  Country: None (occurrence: None)
  Receive Date: 20110811
  Receipt Date: 20110727
  Transmission Date: 20111222
  Serious: Yes (Hospitalization, Other)
  Sender: FDA-Public Use
  Company Number: 2011070208

PATIENT
  Age: 19 Year
  Sex: Female

DRUGS (9)
  1. DOXYCYCLINE [Concomitant]
  2. PARACETAMOL (POWDER) (PARACETAMOL) [Concomitant]
  3. ROWASA [Suspect]
     Indication: CROHN'S DISEASE
     Dosage: (500 MG, ONCE), ORAL
     Route: 048
     Dates: start: 20090801, end: 20110602
  4. CALCIUM CARBONATE [Concomitant]
  5. TRAMADOL (TOPALGIC) (100 MILLIGRAM, TABLETS) (TRAMADOL (TOPALGIC)) [Concomitant]
  6. HUMIRA [Suspect]
     Indication: CROHN'S DISEASE
     Dosage: 5.7143 MG (40 MG, 1 IN 1 WK), SUBCUTANEOUS
     Route: 058
     Dates: start: 20110504
  7. PREDNISONE [Concomitant]
  8. BUDESONIDE (CAPSULES) (BUDESONIDE) [Concomitant]
  9. CARBOMER (CARBOMER) [Concomitant]

REACTIONS (12)
  - CROHN'S DISEASE [None]
  - DYSPHAGIA [None]
  - CHEST PAIN [None]
  - MYOCARDITIS [None]
  - DIARRHOEA HAEMORRHAGIC [None]
  - PYELONEPHRITIS [None]
  - LEFT VENTRICULAR HYPERTROPHY [None]
  - BONE PAIN [None]
  - INSOMNIA [None]
  - PERICARDITIS [None]
  - CONDITION AGGRAVATED [None]
  - PYREXIA [None]
